FAERS Safety Report 25771615 (Version 1)
Quarter: 2025Q3

REPORT INFORMATION
  Report Type: Spontaneous
  Country: US (occurrence: US)
  Receive Date: 20250908
  Receipt Date: 20250908
  Transmission Date: 20251020
  Serious: No
  Sender: DOMPE FARMACEUTICI
  Company Number: US-FARMAPROD-202505-1496

PATIENT
  Age: 81 Year
  Sex: Female
  Weight: 81.65 kg

DRUGS (20)
  1. OXERVATE [Suspect]
     Active Substance: CENEGERMIN-BKBJ
     Indication: Neurotrophic keratopathy
     Route: 047
     Dates: start: 20250502
  2. OXERVATE [Suspect]
     Active Substance: CENEGERMIN-BKBJ
     Indication: Hypoaesthesia eye
  3. GLUCOSAMINE-CHONDROITIN-MSM [Concomitant]
  4. GARLIC [Concomitant]
     Active Substance: GARLIC
  5. VITAMIN D3 [Concomitant]
     Active Substance: CHOLECALCIFEROL
  6. CRANBERRY [Concomitant]
     Active Substance: CRANBERRY
  7. BONEUP [Concomitant]
  8. MULTIVITAMIN 50 PLUS [Concomitant]
  9. REFRESH CLASSIC [Concomitant]
     Active Substance: POLYVINYL ALCOHOL\POVIDONE
  10. ERYTHROMYCIN [Concomitant]
     Active Substance: ERYTHROMYCIN
  11. FUROSEMIDE [Concomitant]
     Active Substance: FUROSEMIDE
  12. ELIQUIS [Concomitant]
     Active Substance: APIXABAN
  13. LOSARTAN POTASSIUM [Concomitant]
     Active Substance: LOSARTAN POTASSIUM
  14. CARVEDILOL [Concomitant]
     Active Substance: CARVEDILOL
  15. FAMOTIDINE [Concomitant]
     Active Substance: FAMOTIDINE
  16. ESTRACE [Concomitant]
     Active Substance: ESTRADIOL
  17. PROLIA [Concomitant]
     Active Substance: DENOSUMAB
  18. LEVOXYL [Concomitant]
     Active Substance: LEVOTHYROXINE SODIUM
  19. DIETARY SUPPLEMENT [Concomitant]
     Active Substance: DIETARY SUPPLEMENT
  20. PRIMROSE [Concomitant]

REACTIONS (2)
  - Eye pain [Not Recovered/Not Resolved]
  - Eye swelling [Unknown]

NARRATIVE: CASE EVENT DATE: 20250503
